FAERS Safety Report 19007485 (Version 1)
Quarter: 2021Q1

REPORT INFORMATION
  Report Type: Spontaneous
  Country: US (occurrence: US)
  Receive Date: 20210315
  Receipt Date: 20210315
  Transmission Date: 20210420
  Serious: Yes (Life-Threatening)
  Sender: FDA-Public Use
  Company Number: None

PATIENT
  Age: 37 Year
  Sex: Female
  Weight: 103.5 kg

DRUGS (14)
  1. COLCHICINE. [Concomitant]
     Active Substance: COLCHICINE
     Dates: start: 20190520
  2. NORCO [Concomitant]
     Active Substance: ACETAMINOPHEN\HYDROCODONE BITARTRATE
     Dates: start: 20100220
  3. EFFEXOR XR [Concomitant]
     Active Substance: VENLAFAXINE HYDROCHLORIDE
     Dates: start: 20100220
  4. PROPANOLOL ER [Concomitant]
     Dates: start: 20050220
  5. PLAQUENIL [Concomitant]
     Active Substance: HYDROXYCHLOROQUINE SULFATE
     Dates: start: 20200320
  6. RAYOS [Concomitant]
     Active Substance: PREDNISONE
     Dates: start: 20201015
  7. PANZYGA [Suspect]
     Active Substance: HUMAN IMMUNOGLOBULIN G
     Indication: IMMUNODEFICIENCY COMMON VARIABLE
     Dosage: ?          OTHER FREQUENCY:EVERY 4 WEEKS;?
     Route: 042
     Dates: start: 20170518
  8. COZAAR [Concomitant]
     Active Substance: LOSARTAN POTASSIUM
     Dates: start: 20190604
  9. COVID?19 VACCINE NOS. [Suspect]
     Active Substance: COVID-19 VACCINE NOS
  10. HYDROCHLOROTHIAZIDE. [Concomitant]
     Active Substance: HYDROCHLOROTHIAZIDE
     Dates: start: 20100220
  11. COVID 19 VACCINE (UNSURE WHICH BRAND) [Concomitant]
  12. NEURONTIN [Concomitant]
     Active Substance: GABAPENTIN
     Dates: start: 20101105
  13. PREVACID [Concomitant]
     Active Substance: LANSOPRAZOLE
     Dates: start: 20050220
  14. FOLIC ACID. [Concomitant]
     Active Substance: FOLIC ACID
     Dates: start: 20050220

REACTIONS (3)
  - Chest discomfort [None]
  - Infusion related reaction [None]
  - Throat tightness [None]

NARRATIVE: CASE EVENT DATE: 20210306
